FAERS Safety Report 6199266-X (Version None)
Quarter: 2009Q2

REPORT INFORMATION
  Report Type: 
  Country: None (occurrence: None)
  Receive Date: 20090522
  Receipt Date: 20090513
  Transmission Date: 20091009
  Serious: Yes (Hospitalization)
  Sender: FDA-Public Use
  Company Number: CA-JNJFOC-20090102574

PATIENT
  Sex: Female
  Weight: 45 kg

DRUGS (7)
  1. REMICADE [Suspect]
     Route: 042
  2. REMICADE [Suspect]
     Indication: CROHN'S DISEASE
     Route: 042
  3. CELEXA [Concomitant]
  4. FERROUS SULFATE TAB [Concomitant]
  5. OLANZAPINE [Concomitant]
  6. NYSTATIN [Concomitant]
  7. KENALOG AND ORABASE [Concomitant]

REACTIONS (2)
  - FALL [None]
  - LACERATION [None]
